FAERS Safety Report 21816984 (Version 1)
Quarter: 2023Q1

REPORT INFORMATION
  Report Type: Spontaneous
  Country: US (occurrence: None)
  Receive Date: 20230103
  Receipt Date: 20230103
  Transmission Date: 20230417
  Serious: Yes (Life-Threatening, Hospitalization)
  Sender: FDA-Public Use
  Company Number: None

PATIENT
  Age: 36 Year
  Sex: Female
  Weight: 50 kg

DRUGS (1)
  1. CARBOPLATIN [Suspect]
     Active Substance: CARBOPLATIN
     Indication: Breast cancer
     Dosage: OTHER FREQUENCY : ONCE;?
     Route: 042
     Dates: start: 20221212

REACTIONS (6)
  - Infusion related reaction [None]
  - Cough [None]
  - Wheezing [None]
  - Dyspnoea [None]
  - Breast cancer metastatic [None]
  - Respiratory distress [None]

NARRATIVE: CASE EVENT DATE: 20221212
